FAERS Safety Report 4928211-7 (Version None)
Quarter: 2006Q1

REPORT INFORMATION
  Report Type: 
  Country: None (occurrence: None)
  Receive Date: 20060223
  Receipt Date: 20060206
  Transmission Date: 20060701
  Serious: Yes (Other)
  Sender: FDA-Public Use
  Company Number: JP200602001713

PATIENT
  Age: 1 Day
  Sex: 0

DRUGS (1)
  1. HUMULIN R [Suspect]
     Dates: start: 20060101, end: 20060101

REACTIONS (1)
  - METABOLIC ACIDOSIS [None]
